FAERS Safety Report 7498875-5 (Version None)
Quarter: 2011Q2

REPORT INFORMATION
  Report Type: 
  Country: None (occurrence: None)
  Receive Date: 20110524
  Receipt Date: 20110519
  Transmission Date: 20111010
  Serious: Yes (Other)
  Sender: FDA-Public Use
  Company Number: US-AMGEN-USASP2011026020

PATIENT
  Age: 12 Year
  Sex: Male

DRUGS (14)
  1. OMEPRAZOLE [Concomitant]
  2. CELLCEPT                           /01275102/ [Concomitant]
  3. PREDNISONE [Concomitant]
  4. BACTRIM [Concomitant]
  5. PENICILLIN [Concomitant]
  6. MICAFUNGIN [Concomitant]
  7. PAMIDRONATE DISODIUM [Concomitant]
  8. ACYCLOVIR [Concomitant]
  9. LOVAZA [Concomitant]
  10. CALCIUM+VIT D                      /00944201/ [Concomitant]
  11. MULTIVITAMIN                       /00097801/ [Concomitant]
  12. NPLATE [Suspect]
     Indication: IDIOPATHIC THROMBOCYTOPENIC PURPURA
     Dates: start: 20110101
  13. MAGNESIUM [Concomitant]
  14. VITAMIN A [Concomitant]

REACTIONS (1)
  - EOSINOPHILIA [None]
